FAERS Safety Report 10447944 (Version 4)
Quarter: 2015Q2

REPORT INFORMATION
  Report Type: Spontaneous
  Country: JP (occurrence: JP)
  Receive Date: 20140911
  Receipt Date: 20150623
  Transmission Date: 20150821
  Serious: Yes (Hospitalization)
  Sender: FDA-Public Use
  Company Number: JP-ELI_LILLY_AND_COMPANY-JP201409001402

PATIENT
  Weight: .61 kg

DRUGS (14)
  1. HUMALOG [Suspect]
     Active Substance: INSULIN LISPRO
     Dosage: 23 IU BASAL AND 8 IU BOLUS DURING PREGNANCY
     Route: 064
  2. ALFACALCIDOL [Concomitant]
     Active Substance: ALFACALCIDOL
     Indication: PRODUCT USED FOR UNKNOWN INDICATION
     Dosage: 0.5 UG, QD
     Route: 048
  3. PROGRAF [Concomitant]
     Active Substance: TACROLIMUS\TACROLIMUS ANHYDROUS
     Indication: IMMUNOSUPPRESSION
     Dosage: 2 MG, QD
     Route: 064
  4. PROGRAF [Concomitant]
     Active Substance: TACROLIMUS\TACROLIMUS ANHYDROUS
     Indication: IMMUNOSUPPRESSION
     Dosage: 2 MG, QD
     Route: 064
  5. PROGRAF [Concomitant]
     Active Substance: TACROLIMUS\TACROLIMUS ANHYDROUS
     Indication: IMMUNOSUPPRESSION
     Dosage: 0.4 MG, QD
     Route: 064
  6. HUMALOG [Suspect]
     Active Substance: INSULIN LISPRO
     Indication: TYPE 1 DIABETES MELLITUS
     Dosage: 17 IU BASAL AND 8 IU BOLUS PRIOR TO PREGNANCY
     Route: 064
  7. LEVEMIR [Suspect]
     Active Substance: INSULIN DETEMIR
     Indication: TYPE 1 DIABETES MELLITUS
     Dosage: 25 IU, QD, PRIOR TO MOTHER^S PREGNANCY
  8. PREDNISOLONE. [Concomitant]
     Active Substance: PREDNISOLONE
     Indication: IMMUNOSUPPRESSION
     Dosage: 5 MG, QD
     Route: 064
  9. ALFACALCIDOL [Concomitant]
     Active Substance: ALFACALCIDOL
     Indication: PRODUCT USED FOR UNKNOWN INDICATION
     Dosage: 0.5 UG, QD
     Route: 048
  10. HUMALOG [Suspect]
     Active Substance: INSULIN LISPRO
     Indication: TYPE 1 DIABETES MELLITUS
     Dosage: 17 IU BASAL AND 8 IU BOLUS PRIOR TO PREGNANCY
     Route: 064
  11. HUMALOG [Suspect]
     Active Substance: INSULIN LISPRO
     Dosage: 23 IU BASAL AND 8 IU BOLUS DURING PREGNANCY
     Route: 064
  12. PREDNISOLONE. [Concomitant]
     Active Substance: PREDNISOLONE
     Indication: IMMUNOSUPPRESSION
     Dosage: 5 MG, QD
     Route: 064
  13. LEVEMIR [Suspect]
     Active Substance: INSULIN DETEMIR
     Indication: TYPE 1 DIABETES MELLITUS
     Dosage: 25 IU, QD, PRIOR TO MOTHER^S PREGNANCY
  14. PROGRAF [Concomitant]
     Active Substance: TACROLIMUS\TACROLIMUS ANHYDROUS
     Indication: IMMUNOSUPPRESSION
     Dosage: 0.4 MG, QD
     Route: 064

REACTIONS (7)
  - Apgar score low [Unknown]
  - Platelet count decreased [Unknown]
  - Foetal exposure during pregnancy [Unknown]
  - White blood cell count decreased [Unknown]
  - Maternal exposure before pregnancy [Unknown]
  - Premature baby [Unknown]
  - Inguinal hernia [Recovering/Resolving]
